FAERS Safety Report 5358998-3 (Version None)
Quarter: 2007Q2

REPORT INFORMATION
  Report Type: 
  Country: None (occurrence: None)
  Receive Date: 20070615
  Receipt Date: 20070606
  Transmission Date: 20071010
  Serious: Yes (Hospitalization)
  Sender: FDA-Public Use
  Company Number: B0475117A

PATIENT
  Age: 87 Year

DRUGS (8)
  1. ASPIRIN [Suspect]
     Indication: DRUG USE FOR UNKNOWN INDICATION
     Dosage: 75MG PER DAY
     Route: 001
     Dates: end: 20070518
  2. AMLODIPINE [Concomitant]
     Dosage: 5MG PER DAY
     Route: 048
  3. BENDROFLUMETHIAZIDE [Concomitant]
     Dosage: 2.5MG PER DAY
     Route: 048
  4. ENOXAPARIN SODIUM [Concomitant]
     Dosage: 20MG SINGLE DOSE
     Route: 058
     Dates: start: 20070519, end: 20070520
  5. GAVISCON [Concomitant]
     Route: 050
     Dates: start: 20070518
  6. LATANOPROST [Concomitant]
     Route: 047
  7. TIMOLOL MALEATE [Concomitant]
     Dosage: .25%DS TWICE PER DAY
  8. RANITIDINE [Concomitant]
     Dosage: 150MG PER DAY
     Route: 048
     Dates: start: 20070518

REACTIONS (2)
  - HAEMATEMESIS [None]
  - REFLUX OESOPHAGITIS [None]
